FAERS Safety Report 7180185-7 (Version None)
Quarter: 2010Q4

REPORT INFORMATION
  Report Type: 
  Country: None (occurrence: None)
  Receive Date: 20101221
  Receipt Date: 20101213
  Transmission Date: 20110411
  Serious: Yes (Hospitalization)
  Sender: FDA-Public Use
  Company Number: US-SHIONOGI USA, INC-2010000091

PATIENT
  Age: 29 Year

DRUGS (1)
  1. EPINEPHRINE [Suspect]
     Indication: ANAPHYLACTIC REACTION
     Dosage: 1 MG DOSE (ADMINISTERED TWICE)
     Route: 030

REACTIONS (2)
  - DRUG TOXICITY [None]
  - HYPOTENSION [None]
